FAERS Safety Report 19713450 (Version 1)
Quarter: 2021Q3

REPORT INFORMATION
  Report Type: Spontaneous
  Country: FR (occurrence: FR)
  Receive Date: 20210817
  Receipt Date: 20210817
  Transmission Date: 20211014
  Serious: No
  Sender: FDA-Public Use
  Company Number: FR-JAZZ-2021-FR-009845

PATIENT

DRUGS (2)
  1. ATTENTIN [DEXAMFETAMINE SULFATE] [Suspect]
     Active Substance: DEXTROAMPHETAMINE SULFATE
     Indication: HYPERSOMNIA
     Dosage: 60 MILLIGRAM
     Route: 048
     Dates: start: 201706
  2. XYREM [Suspect]
     Active Substance: SODIUM OXYBATE
     Indication: HYPERSOMNIA
     Dosage: 8 GRAMS
     Route: 048
     Dates: start: 2014

REACTIONS (3)
  - Dyspnoea exertional [Recovered/Resolved]
  - Off label use [Unknown]
  - Sinus tachycardia [Recovered/Resolved]

NARRATIVE: CASE EVENT DATE: 2014
